FAERS Safety Report 9168131 (Version 2)
Quarter: 2013Q2

REPORT INFORMATION
  Report Type: Spontaneous
  Country: US (occurrence: None)
  Receive Date: 20130225
  Receipt Date: 20130530
  Transmission Date: 20140414
  Serious: Yes (Other)
  Sender: FDA-Public Use
  Company Number: 2013PROUSA02564

PATIENT
  Age: 77 Year
  Sex: Male
  Weight: 85.7 kg

DRUGS (7)
  1. PROVENGE [Suspect]
     Indication: PROSTATE CANCER METASTATIC
     Dosage: SINGLE
     Route: 042
     Dates: start: 20130128, end: 20130128
  2. HYDROCODONE W/APAP (HYDROCODONE BITARTRATE, PARACETAMOL) [Concomitant]
  3. ASPIRIN (ACETYLSALICYLIC ACID) [Concomitant]
  4. LEVOTHYROXINE (LEVOTHYROXINE SODIUM) [Concomitant]
  5. SENNA (SENNOSIDE A+B) [Concomitant]
  6. ZANTAC (RANITIDINE HYDROCHLORIDE) [Concomitant]
  7. OMEPRAZOLE (OMEPARAZOLE) [Concomitant]

REACTIONS (27)
  - Blindness unilateral [None]
  - Sleep disorder [None]
  - Vision blurred [None]
  - Dyspnoea exertional [None]
  - Dysgeusia [None]
  - Dyspepsia [None]
  - Abdominal pain [None]
  - Nocturia [None]
  - Micturition urgency [None]
  - Temperature intolerance [None]
  - Depressed mood [None]
  - Platelet count decreased [None]
  - Decreased appetite [None]
  - Weight decreased [None]
  - Fatigue [None]
  - Chills [None]
  - Constipation [None]
  - Asthenia [None]
  - Hyperhidrosis [None]
  - Haemoglobin decreased [None]
  - Cough [None]
  - Blindness transient [None]
  - Malaise [None]
  - Back pain [None]
  - Metastases to bone [None]
  - Prostate cancer metastatic [None]
  - Prostate cancer [None]
